FAERS Safety Report 5604654-3 (Version None)
Quarter: 2008Q1

REPORT INFORMATION
  Report Type: 
  Country: None (occurrence: None)
  Receive Date: 20080128
  Receipt Date: 20080118
  Transmission Date: 20080703
  Serious: Yes (Hospitalization, Other)
  Sender: FDA-Public Use
  Company Number: US-MERCK-0708USA05883

PATIENT
  Age: 65 Year
  Sex: Female
  Weight: 73 kg

DRUGS (1)
  1. FOSAMAX [Suspect]
     Indication: OSTEOPOROSIS
     Route: 048
     Dates: start: 20000519, end: 20051011

REACTIONS (15)
  - ABSCESS ORAL [None]
  - CARDIAC FAILURE CONGESTIVE [None]
  - CHRONIC OBSTRUCTIVE PULMONARY DISEASE [None]
  - COR PULMONALE [None]
  - DEPRESSION [None]
  - ENDODONTIC PROCEDURE [None]
  - ORAL CAVITY FISTULA [None]
  - OSTEONECROSIS [None]
  - PHARYNGOLARYNGEAL PAIN [None]
  - PNEUMONIA [None]
  - PURULENCE [None]
  - RESPIRATORY FAILURE [None]
  - STOMATITIS [None]
  - SWOLLEN TONGUE [None]
  - TYMPANIC MEMBRANE PERFORATION [None]
